FAERS Safety Report 15500000 (Version 1)
Quarter: 2018Q4

REPORT INFORMATION
  Report Type: Spontaneous
  Country: US (occurrence: US)
  Receive Date: 20181015
  Receipt Date: 20181015
  Transmission Date: 20190205
  Serious: No
  Sender: FDA-Public Use
  Company Number: US-UNIQUE PHARMACEUTICAL LABORATORIES-2018RIS00042

PATIENT
  Age: 56 Year
  Sex: Female

DRUGS (1)
  1. CETIRIZINE HYDROCHLORIDE. [Suspect]
     Active Substance: CETIRIZINE HYDROCHLORIDE
     Indication: SEASONAL ALLERGY
     Dosage: 10 MG, 1X/DAY AT NIGHTTIME
     Route: 048
     Dates: start: 201607, end: 20171218

REACTIONS (3)
  - Drug effect decreased [Not Recovered/Not Resolved]
  - Pain [Recovered/Resolved]
  - Fibromyalgia [Recovered/Resolved]

NARRATIVE: CASE EVENT DATE: 201705
